FAERS Safety Report 23377874 (Version 2)
Quarter: 2024Q1

REPORT INFORMATION
  Report Type: Spontaneous
  Country: US (occurrence: US)
  Receive Date: 20240108
  Receipt Date: 20240212
  Transmission Date: 20240410
  Serious: Yes (Other)
  Sender: FDA-Public Use
  Company Number: US-PFIZER INC-202300456875

PATIENT
  Age: 78 Year
  Sex: Female
  Weight: 81.633 kg

DRUGS (2)
  1. DOFETILIDE [Suspect]
     Active Substance: DOFETILIDE
     Indication: Atrial fibrillation
     Dosage: 500 UG, 2X/DAY (500MG TWO BY MOUTH TWO TIMES DAILY)
     Route: 048
  2. DOFETILIDE [Suspect]
     Active Substance: DOFETILIDE
     Dosage: 500 MG TWICE A DAY

REACTIONS (3)
  - Cerebrovascular accident [Unknown]
  - Mental impairment [Unknown]
  - Memory impairment [Unknown]
